FAERS Safety Report 7293678-9 (Version None)
Quarter: 2011Q1

REPORT INFORMATION
  Report Type: 
  Country: None (occurrence: None)
  Receive Date: 20110215
  Receipt Date: 20110209
  Transmission Date: 20110831
  Serious: Yes (Other)
  Sender: FDA-Public Use
  Company Number: B0699361A

PATIENT
  Sex: Male

DRUGS (1)
  1. SUMATRIPTAN SUCCINATE [Suspect]
     Indication: CLUSTER HEADACHE
     Dosage: 50INJ UNKNOWN
     Route: 058
     Dates: start: 20110101

REACTIONS (1)
  - INTENTIONAL OVERDOSE [None]
